FAERS Safety Report 21796915 (Version 1)
Quarter: 2022Q4

REPORT INFORMATION
  Report Type: Spontaneous
  Country: ES (occurrence: ES)
  Receive Date: 20221230
  Receipt Date: 20221230
  Transmission Date: 20230113
  Serious: Yes (Other)
  Sender: FDA-Public Use
  Company Number: None

PATIENT
  Age: 29 Year
  Sex: Male

DRUGS (9)
  1. BUSULFAN [Suspect]
     Active Substance: BUSULFAN
     Indication: Acute promyelocytic leukaemia
     Dosage: UNK
  2. BUSULFAN [Suspect]
     Active Substance: BUSULFAN
     Indication: Bone marrow conditioning regimen
  3. BUSULFAN [Suspect]
     Active Substance: BUSULFAN
     Indication: Stem cell transplant
  4. CARMUSTINE [Concomitant]
     Active Substance: CARMUSTINE
     Indication: Acute promyelocytic leukaemia
     Dosage: UNK
  5. CARMUSTINE [Concomitant]
     Active Substance: CARMUSTINE
     Indication: Bone marrow conditioning regimen
  6. CARMUSTINE [Concomitant]
     Active Substance: CARMUSTINE
     Indication: Stem cell transplant
  7. ETOPOSIDE [Concomitant]
     Active Substance: ETOPOSIDE
     Indication: Stem cell transplant
  8. ETOPOSIDE [Concomitant]
     Active Substance: ETOPOSIDE
     Indication: Bone marrow conditioning regimen
  9. ETOPOSIDE [Concomitant]
     Active Substance: ETOPOSIDE
     Indication: Acute promyelocytic leukaemia

REACTIONS (4)
  - Coagulopathy [Unknown]
  - Venoocclusive liver disease [Recovered/Resolved]
  - Thrombocytopenia [Unknown]
  - Off label use [Unknown]
